FAERS Safety Report 15665638 (Version 1)
Quarter: 2018Q4

REPORT INFORMATION
  Report Type: Spontaneous
  Country: US (occurrence: US)
  Receive Date: 20181117
  Receipt Date: 20181117
  Transmission Date: 20190205
  Serious: Yes (Death, Hospitalization)
  Sender: FDA-Public Use
  Company Number: None

PATIENT
  Age: 54 Year
  Sex: Male
  Weight: 85.95 kg

DRUGS (2)
  1. PEMBROLIZUMAB. [Suspect]
     Active Substance: PEMBROLIZUMAB
     Indication: ACUTE RESPIRATORY DISTRESS SYNDROME
     Dosage: ?          OTHER FREQUENCY:Q3 WEEK;?
     Route: 041
     Dates: start: 20180926, end: 20181017
  2. PEMETREXED. [Suspect]
     Active Substance: PEMETREXED
     Dates: start: 20180926, end: 20181017

REACTIONS (5)
  - Dyspnoea [None]
  - Hypoxia [None]
  - Neutropenia [None]
  - Malignant pleural effusion [None]
  - Pulmonary embolism [None]

NARRATIVE: CASE EVENT DATE: 20181017
